FAERS Safety Report 14352345 (Version 1)
Quarter: 2018Q1

REPORT INFORMATION
  Report Type: Spontaneous
  Country: US (occurrence: US)
  Receive Date: 20180104
  Receipt Date: 20180104
  Transmission Date: 20180509
  Serious: No
  Sender: FDA-Public Use
  Company Number: US-ELI_LILLY_AND_COMPANY-US201712012107

PATIENT
  Sex: Male

DRUGS (3)
  1. METFORMIN [Concomitant]
     Active Substance: METFORMIN HYDROCHLORIDE
     Indication: DIABETES MELLITUS
     Dosage: 1000 MG, BID
  2. GLYBURIDE. [Concomitant]
     Active Substance: GLYBURIDE
     Indication: DIABETES MELLITUS
     Dosage: 3 DF, BID
  3. TRULICITY [Suspect]
     Active Substance: DULAGLUTIDE
     Indication: DIABETES MELLITUS
     Dosage: 0.75 MG, UNKNOWN
     Route: 065
     Dates: start: 20171224

REACTIONS (5)
  - Dizziness [Unknown]
  - Dehydration [Unknown]
  - Blood pressure increased [Unknown]
  - Heart rate abnormal [Unknown]
  - Heart rate increased [Not Recovered/Not Resolved]

NARRATIVE: CASE EVENT DATE: 20171224
